FAERS Safety Report 4647165-4 (Version None)
Quarter: 2005Q2

REPORT INFORMATION
  Report Type: 
  Country: None (occurrence: None)
  Receive Date: 20050426
  Receipt Date: 20050413
  Transmission Date: 20051028
  Serious: Yes (Death, Hospitalization)
  Sender: FDA-Public Use
  Company Number: 2005AL001411

PATIENT
  Age: 44 Year
  Sex: Male

DRUGS (4)
  1. SERAX [Suspect]
     Dosage: PO
     Route: 048
     Dates: end: 20050317
  2. ROFERON-A [Suspect]
     Indication: CHRONIC HEPATITIS
     Dosage: 135 UG; QW; PO
     Route: 048
     Dates: start: 20040615, end: 20050316
  3. RIBAVIRIN [Suspect]
     Dosage: PO
     Route: 048
     Dates: start: 20040615, end: 20050316
  4. TERCIAN [Suspect]
     Dosage: PO
     Route: 048
     Dates: end: 20050317

REACTIONS (8)
  - DRUG TOXICITY [None]
  - HAEMODYNAMIC INSTABILITY [None]
  - HEPATIC FAILURE [None]
  - INFLUENZA LIKE ILLNESS [None]
  - PANCYTOPENIA [None]
  - PNEUMOCOCCAL INFECTION [None]
  - RESPIRATORY FAILURE [None]
  - SEPTIC SHOCK [None]
